FAERS Safety Report 6108581-7 (Version None)
Quarter: 2009Q1

REPORT INFORMATION
  Report Type: 
  Country: None (occurrence: None)
  Receive Date: 20090303
  Receipt Date: 20090218
  Transmission Date: 20090719
  Serious: Yes (Death)
  Sender: FDA-Public Use
  Company Number: 1-17613908

PATIENT
  Age: 64 Year
  Sex: Male
  Weight: 62.7778 kg

DRUGS (17)
  1. ACYCLOVIR [Suspect]
     Indication: ANTIVIRAL PROPHYLAXIS
     Dosage: 400 MG TWICE DAILY, ORAL
     Route: 048
     Dates: start: 20081211, end: 20081211
  2. MARIBAVIR 100 MG TABLETS [Suspect]
     Indication: ANTIVIRAL PROPHYLAXIS
     Dosage: 100 MG TWICE DAILY, ORAL
     Route: 048
     Dates: start: 20081211, end: 20081211
  3. GANCICLOVIR 500 MG PLACEBO CAPSULES [Suspect]
     Indication: ANTIVIRAL PROPHYLAXIS
     Dosage: 1000 MG THREE TIMES DAILY, ORAL
     Route: 048
     Dates: start: 20081211, end: 20081211
  4. SOLU-MEDROL [Concomitant]
  5. CELLCEPT [Concomitant]
  6. BACTRIM [Concomitant]
  7. PROGRAF [Concomitant]
  8. NEXIUM [Concomitant]
  9. TRIFLUCAN [Concomitant]
  10. ACETAMINOPHEN [Concomitant]
  11. LOVENOX [Concomitant]
  12. HYPNOVEL [Concomitant]
  13. MORPHINE [Concomitant]
  14. NORADRENALINE [Concomitant]
  15. KAYEXALATE [Concomitant]
  16. CORDARONE [Concomitant]
  17. NIMBEX [Concomitant]

REACTIONS (3)
  - ASCITES [None]
  - RESPIRATORY DISTRESS [None]
  - WOUND EVISCERATION [None]
